FAERS Safety Report 11423592 (Version 1)
Quarter: 2015Q3

REPORT INFORMATION
  Report Type: Spontaneous
  Country: US (occurrence: US)
  Receive Date: 20150827
  Receipt Date: 20150827
  Transmission Date: 20151125
  Serious: No
  Sender: FDA-Public Use
  Company Number: US-JNJFOC-20150500837

PATIENT
  Age: 1 Year
  Sex: Male
  Weight: 10.89 kg

DRUGS (2)
  1. CHILDRENS MOTRIN [Suspect]
     Active Substance: IBUPROFEN
     Indication: PYREXIA
     Route: 048
     Dates: start: 20150429
  2. CHILDRENS MOTRIN [Suspect]
     Active Substance: IBUPROFEN
     Indication: PYREXIA
     Dosage: TWO MONTHS AGO
     Route: 048

REACTIONS (3)
  - Wrong technique in product usage process [Unknown]
  - Drug administered to patient of inappropriate age [Unknown]
  - Incorrect dose administered [Unknown]
